FAERS Safety Report 25905050 (Version 1)
Quarter: 2025Q4

REPORT INFORMATION
  Report Type: Spontaneous
  Country: US (occurrence: US)
  Receive Date: 20251010
  Receipt Date: 20251010
  Transmission Date: 20260118
  Serious: Yes (Hospitalization)
  Sender: ROCHE
  Company Number: US-ROCHE-10000404916

PATIENT
  Sex: Female
  Weight: 54.43 kg

DRUGS (1)
  1. KADCYLA [Suspect]
     Active Substance: ADO-TRASTUZUMAB EMTANSINE
     Indication: Breast cancer
     Dosage: ONCE IN 3
     Route: 065
     Dates: start: 2025

REACTIONS (2)
  - Staphylococcus test positive [Unknown]
  - Malaise [Unknown]
